FAERS Safety Report 6356772-2 (Version None)
Quarter: 2009Q3

REPORT INFORMATION
  Report Type: 
  Country: None (occurrence: None)
  Receive Date: 20090915
  Receipt Date: 20090908
  Transmission Date: 20100115
  Serious: No
  Sender: FDA-Public Use
  Company Number: US-B.I. PHARMACEUTICALS,INC./RIDGEFIELD-2009-BP-06843BP

PATIENT
  Sex: Male

DRUGS (5)
  1. FLOMAX [Suspect]
     Indication: PROSTATOMEGALY
     Dosage: 0.4 MG
     Dates: start: 20080414
  2. FLOMAX [Suspect]
     Indication: POLLAKIURIA
     Dosage: 0.4 MG
     Dates: start: 20080911
  3. QUINAPRIL [Concomitant]
  4. LIPITOR [Concomitant]
  5. AMLODIPINE [Concomitant]

REACTIONS (2)
  - NASAL CONGESTION [None]
  - RHINORRHOEA [None]
